FAERS Safety Report 12545231 (Version 1)
Quarter: 2016Q3

REPORT INFORMATION
  Report Type: Spontaneous
  Country: CH (occurrence: CH)
  Receive Date: 20160711
  Receipt Date: 20160711
  Transmission Date: 20161109
  Serious: Yes (Other)
  Sender: FDA-Public Use
  Company Number: CH-BAYER-2016-114497

PATIENT
  Age: 74 Year
  Sex: Female

DRUGS (2)
  1. GADOBUTROL [Suspect]
     Active Substance: GADOBUTROL
     Indication: SKIN TEST
  2. GADOBENIC ACID [Suspect]
     Active Substance: GADOBENIC ACID
     Indication: SKIN TEST

REACTIONS (2)
  - Drug cross-reactivity [Unknown]
  - Skin test positive [None]
